FAERS Safety Report 9778612 (Version 1)
Quarter: 2013Q4

REPORT INFORMATION
  Report Type: Spontaneous
  Country: US (occurrence: US)
  Receive Date: 20131223
  Receipt Date: 20131223
  Transmission Date: 20140711
  Serious: Yes (Death)
  Sender: FDA-Public Use
  Company Number: US-TEVA-451253USA

PATIENT
  Sex: Male

DRUGS (1)
  1. ACTIQ [Suspect]

REACTIONS (1)
  - Death [Fatal]
